FAERS Safety Report 5600329-5 (Version None)
Quarter: 2008Q1

REPORT INFORMATION
  Report Type: 
  Country: None (occurrence: None)
  Receive Date: 20080123
  Receipt Date: 20080117
  Transmission Date: 20080703
  Serious: Yes (Hospitalization)
  Sender: FDA-Public Use
  Company Number: US-AVENTIS-200810661GDDC

PATIENT
  Age: 79 Year
  Sex: Male
  Weight: 70.76 kg

DRUGS (4)
  1. TAXOTERE [Suspect]
     Indication: PROSTATE CANCER
     Route: 042
     Dates: start: 20071001, end: 20071213
  2. CODE UNBROKEN [Suspect]
     Indication: PROSTATE CANCER
     Dosage: DOSE: UNK
     Route: 048
     Dates: start: 20071001, end: 20071213
  3. DEXAMETHASONE TAB [Concomitant]
     Dates: start: 20071001, end: 20071214
  4. PREDNISONE [Concomitant]
     Dates: start: 20071001, end: 20071226

REACTIONS (5)
  - CONSTIPATION [None]
  - DYSPNOEA [None]
  - FATIGUE [None]
  - HAEMATOCHEZIA [None]
  - RENAL FAILURE [None]
